FAERS Safety Report 7378963-4 (Version None)
Quarter: 2011Q1

REPORT INFORMATION
  Report Type: 
  Country: None (occurrence: None)
  Receive Date: 20110328
  Receipt Date: 20110318
  Transmission Date: 20110831
  Serious: Yes (Hospitalization)
  Sender: FDA-Public Use
  Company Number: AU-JNJFOC-20110308845

PATIENT
  Sex: Male
  Weight: 71 kg

DRUGS (12)
  1. PALIPERIDONE PALMITATE [Suspect]
     Route: 030
  2. TIOTROPIUM [Concomitant]
     Indication: WHEEZING
  3. PALIPERIDONE PALMITATE [Suspect]
     Route: 030
  4. PALIPERIDONE PALMITATE [Suspect]
     Route: 030
  5. PALIPERIDONE PALMITATE [Suspect]
     Route: 030
  6. PALIPERIDONE PALMITATE [Suspect]
     Route: 030
  7. SALMETEROL [Concomitant]
     Indication: WHEEZING
  8. PALIPERIDONE PALMITATE [Suspect]
     Indication: SCHIZOPHRENIA
     Route: 030
  9. PALIPERIDONE PALMITATE [Suspect]
     Route: 030
  10. RISPERIDONE [Concomitant]
     Indication: PSYCHOTIC DISORDER
  11. LORAZEPAM [Concomitant]
     Indication: AGITATION
  12. FLUTICASONE PROPIONATE [Concomitant]
     Indication: WHEEZING

REACTIONS (2)
  - AGITATION [None]
  - AGGRESSION [None]
